FAERS Safety Report 20933538 (Version 3)
Quarter: 2022Q3

REPORT INFORMATION
  Report Type: Report from Study
  Country: US (occurrence: US)
  Receive Date: 20220608
  Receipt Date: 20220730
  Transmission Date: 20221027
  Serious: No
  Sender: FDA-Public Use
  Company Number: US-NOVARTISTESTPH-NVSC2022US131908

PATIENT
  Age: 71 Year
  Sex: Male

DRUGS (1)
  1. ENTRESTO [Suspect]
     Active Substance: SACUBITRIL\VALSARTAN
     Indication: Product used for unknown indication
     Dosage: UNK, (START DATE: 2022)
     Route: 048
     Dates: start: 2022

REACTIONS (2)
  - Overweight [Unknown]
  - Tendonitis [Unknown]

NARRATIVE: CASE EVENT DATE: 20220501
